FAERS Safety Report 7956090-2 (Version None)
Quarter: 2011Q4

REPORT INFORMATION
  Report Type: 
  Country: None (occurrence: None)
  Receive Date: 20111205
  Receipt Date: 20111129
  Transmission Date: 20120403
  Serious: Yes (Other)
  Sender: FDA-Public Use
  Company Number: US-B.I. PHARMACEUTICALS,INC./RIDGEFIELD-2011-BP-25016BP

PATIENT
  Sex: Female

DRUGS (7)
  1. LOSARTAN POTASSIUM [Concomitant]
     Indication: HYPERTENSION
     Dosage: 50 MG
     Route: 048
     Dates: start: 20110401
  2. FOLIC ACID [Concomitant]
     Dosage: 1 MG
     Route: 048
     Dates: start: 20070101
  3. DIPYRIDAMOLE [Concomitant]
     Indication: CEREBROVASCULAR ACCIDENT PROPHYLAXIS
     Dosage: 100 MG
     Route: 048
     Dates: start: 20110401
  4. AGGRENOX [Suspect]
     Route: 048
  5. PREDNISONE TAB [Concomitant]
     Dosage: 7.5 MG
  6. AGGRENOX [Suspect]
     Indication: CEREBROVASCULAR ACCIDENT PROPHYLAXIS
     Route: 048
     Dates: start: 20070101
  7. PRAVASTATIN [Concomitant]
     Indication: BLOOD CHOLESTEROL INCREASED
     Dosage: 20 MG

REACTIONS (5)
  - ARTERITIS [None]
  - INSOMNIA [None]
  - ANXIETY [None]
  - BREAST CANCER [None]
  - HOT FLUSH [None]
